FAERS Safety Report 5306894-X (Version None)
Quarter: 2007Q2

REPORT INFORMATION
  Report Type: 
  Country: None (occurrence: None)
  Receive Date: 20070425
  Receipt Date: 20070411
  Transmission Date: 20071010
  Serious: Yes (Other)
  Sender: FDA-Public Use
  Company Number: PHEH2007US04855

PATIENT
  Age: 82 Year
  Sex: Female
  Weight: 108 kg

DRUGS (11)
  1. GLEEVEC [Suspect]
     Indication: CHRONIC MYELOID LEUKAEMIA
     Dosage: 100 MG, QD
     Route: 048
     Dates: end: 20060501
  2. GLEEVEC [Suspect]
     Dosage: 100 MG, QD
     Route: 048
     Dates: end: 20060901
  3. FORTEO [Concomitant]
     Dosage: 1 DF, QD
     Route: 048
  4. THALOMID [Suspect]
     Indication: MULTIPLE MYELOMA
     Dosage: 50-200 MG QD
     Route: 048
     Dates: start: 20060929, end: 20061201
  5. CLONIDINE [Concomitant]
     Indication: HYPERTENSION
  6. TRICOR [Concomitant]
     Dosage: 1 DF, QD
     Route: 048
  7. ACIPHEX [Concomitant]
     Dosage: 20 MG, BID
     Route: 048
  8. CARDIZEM SR [Concomitant]
     Dosage: 360 MG, QD
     Route: 048
  9. RYTHMOL [Concomitant]
     Dosage: 225 MG, BID
     Route: 048
  10. ALLOPURINOL [Concomitant]
     Dosage: 300 MG, QOD
     Route: 048
  11. CATAPRES                                /UNK/ [Concomitant]
     Dosage: UNK, QW

REACTIONS (4)
  - DIZZINESS [None]
  - MULTIPLE MYELOMA [None]
  - PARAESTHESIA [None]
  - TUMOUR LYSIS SYNDROME [None]
